FAERS Safety Report 17978606 (Version 1)
Quarter: 2020Q3

REPORT INFORMATION
  Report Type: Spontaneous
  Country: US (occurrence: US)
  Receive Date: 20200703
  Receipt Date: 20200703
  Transmission Date: 20201103
  Serious: Yes (Other)
  Sender: FDA-Public Use
  Company Number: US-TEVA-2020-US-1796457

PATIENT

DRUGS (1)
  1. DIAZEPAM TEVA [Suspect]
     Active Substance: DIAZEPAM
     Indication: ANXIETY
     Dosage: START DATE: TAKEN FOR ABOUT SIX YEARS
     Route: 065

REACTIONS (13)
  - Disturbance in attention [Recovered/Resolved]
  - Tremor [Recovered/Resolved]
  - Drug dependence [Unknown]
  - Agitation [Recovered/Resolved]
  - Drug ineffective [Unknown]
  - Withdrawal syndrome [Unknown]
  - Hyperhidrosis [Recovered/Resolved]
  - Hyperreflexia [Recovered/Resolved]
  - Product quality issue [Unknown]
  - Hypertension [Recovered/Resolved]
  - Insomnia [Recovered/Resolved]
  - Anxiety [Unknown]
  - Product taste abnormal [Unknown]
